FAERS Safety Report 6407353-3 (Version None)
Quarter: 2009Q4

REPORT INFORMATION
  Report Type: 
  Country: None (occurrence: None)
  Receive Date: 20091014
  Receipt Date: 20090930
  Transmission Date: 20100525
  Serious: Yes (Hospitalization)
  Sender: FDA-Public Use
  Company Number: 8052809

PATIENT
  Age: 75 Year
  Sex: Female
  Weight: 59 kg

DRUGS (22)
  1. CERTOLIZUMAB PEGOL [Suspect]
     Indication: RHEUMATOID ARTHRITIS
     Dosage: 400 MG 1/2W SC
     Route: 058
     Dates: start: 20050614, end: 20060529
  2. CERTOLIZUMAB PEGOL [Suspect]
     Indication: RHEUMATOID ARTHRITIS
     Dosage: 400 MG 1/2W SC
     Route: 058
     Dates: start: 20060613, end: 20080108
  3. CERTOLIZUMAB PEGOL [Suspect]
     Indication: RHEUMATOID ARTHRITIS
     Dosage: 200 MG 1/2W SC
     Route: 058
     Dates: start: 20080121
  4. METHOTREXATE [Concomitant]
  5. FOLIC ACID [Concomitant]
  6. ACETAMINOPHEN [Concomitant]
  7. VOLTAREN [Concomitant]
  8. SIMVASTATIN [Concomitant]
  9. CARTIA /00002701/ [Concomitant]
  10. TIMOLOL [Concomitant]
  11. RHEUMON [Concomitant]
  12. FORTISIP [Concomitant]
  13. OMEPRAZOLE [Concomitant]
  14. KIWI CRUSH KIWI FRUIT EXTRACT [Concomitant]
  15. LEVOTHYROXINE SODIUM [Concomitant]
  16. COLECALCIFEROL [Concomitant]
  17. FOSAMAX PLUS D [Concomitant]
  18. LAXOL [Concomitant]
  19. LACTULOSE [Concomitant]
  20. XALATAN [Concomitant]
  21. FRUSEMIDE [Concomitant]
  22. SPIRONOLACTONE [Concomitant]

REACTIONS (10)
  - CONSTIPATION [None]
  - FEMUR FRACTURE [None]
  - LOBAR PNEUMONIA [None]
  - OEDEMA PERIPHERAL [None]
  - OSTEOPOROSIS [None]
  - RESPIRATORY TRACT INFECTION [None]
  - RHEUMATOID ARTHRITIS [None]
  - STASIS DERMATITIS [None]
  - TIBIA FRACTURE [None]
  - WRIST FRACTURE [None]
